FAERS Safety Report 22298163 (Version 2)
Quarter: 2023Q2

REPORT INFORMATION
  Report Type: Spontaneous
  Country: DE (occurrence: DE)
  Receive Date: 20230509
  Receipt Date: 20230512
  Transmission Date: 20230721
  Serious: Yes (Other)
  Sender: FDA-Public Use
  Company Number: None

PATIENT
  Age: 34 Year
  Sex: Female
  Weight: 65 kg

DRUGS (4)
  1. CIPROFLOXACIN [Suspect]
     Active Substance: CIPROFLOXACIN
     Indication: Pyelonephritis
     Dosage: 2X 400MG
     Route: 048
     Dates: start: 20130912, end: 20130924
  2. CIPROFLOXACIN [Suspect]
     Active Substance: CIPROFLOXACIN
     Indication: Urinary tract infection
  3. IBUPROFEN [Concomitant]
     Active Substance: IBUPROFEN
     Dosage: 600 MG
  4. PERFALGAN [Concomitant]
     Active Substance: ACETAMINOPHEN

REACTIONS (49)
  - Myasthenia gravis [None]
  - Visual impairment [Recovered/Resolved with Sequelae]
  - Sensory disturbance [Recovered/Resolved with Sequelae]
  - Tendon pain [Recovered/Resolved with Sequelae]
  - Peripheral swelling [Recovered/Resolved with Sequelae]
  - Myalgia [Recovered/Resolved with Sequelae]
  - Sick leave [Unknown]
  - Asthenia [Unknown]
  - Visual impairment [Recovered/Resolved with Sequelae]
  - Pain in extremity [Recovered/Resolved with Sequelae]
  - Mobility decreased [Unknown]
  - Fatigue [Recovered/Resolved with Sequelae]
  - Gait disturbance [Unknown]
  - Hypoaesthesia [Recovered/Resolved with Sequelae]
  - Tendon pain [Recovered/Resolved with Sequelae]
  - Loss of personal independence in daily activities [Unknown]
  - Burning sensation [Recovered/Resolved with Sequelae]
  - Pain in extremity [None]
  - Listless [None]
  - Fibromyalgia [None]
  - Constipation [None]
  - Mood swings [None]
  - Weight increased [None]
  - Back pain [None]
  - Nausea [None]
  - Arthralgia [None]
  - Dyspepsia [None]
  - Fatigue [None]
  - Dyspnoea [None]
  - Vision blurred [None]
  - Jaw disorder [None]
  - Musculoskeletal discomfort [None]
  - Facial pain [None]
  - Motor dysfunction [None]
  - Hyperhidrosis [None]
  - Hypotonia [None]
  - Heart rate decreased [None]
  - Performance status decreased [None]
  - Impaired work ability [None]
  - Mobility decreased [None]
  - Diarrhoea [None]
  - Tinnitus [None]
  - Disturbance in attention [None]
  - Spinal pain [None]
  - Joint swelling [None]
  - Abdominal discomfort [None]
  - Movement disorder [None]
  - Middle insomnia [None]
  - Muscular weakness [None]

NARRATIVE: CASE EVENT DATE: 20130918
